FAERS Safety Report 10692631 (Version 1)
Quarter: 2015Q1

REPORT INFORMATION
  Report Type: Spontaneous
  Country: US (occurrence: None)
  Receive Date: 20150105
  Receipt Date: 20150105
  Transmission Date: 20150720
  Serious: No
  Sender: FDA-Public Use
  Company Number: None

PATIENT
  Age: 28 Year
  Sex: Female

DRUGS (1)
  1. METHYLPHENIDATE ER 36MG KREMERS URBAN [Suspect]
     Active Substance: METHYLPHENIDATE
     Indication: ATTENTION DEFICIT/HYPERACTIVITY DISORDER
     Dosage: 1 PIL, ONCE DAILY, TAKEN BY MOUTH?
     Route: 048
     Dates: start: 20131205, end: 20140101

REACTIONS (7)
  - Product substitution issue [None]
  - Product formulation issue [None]
  - Rectal haemorrhage [None]
  - Product quality issue [None]
  - Abdominal pain upper [None]
  - Gastrointestinal pain [None]
  - Drug effect decreased [None]

NARRATIVE: CASE EVENT DATE: 20131215
